FAERS Safety Report 7542737-1 (Version None)
Quarter: 2011Q2

REPORT INFORMATION
  Report Type: 
  Country: None (occurrence: None)
  Receive Date: 20110613
  Receipt Date: 20101008
  Transmission Date: 20111010
  Serious: Yes (Hospitalization)
  Sender: FDA-Public Use
  Company Number: A0887186A

PATIENT
  Age: 68 Year
  Sex: Female

DRUGS (2)
  1. AVANDIA [Suspect]
     Route: 048
     Dates: start: 20010218, end: 20040413
  2. AVANDAMET [Suspect]
     Route: 048
     Dates: start: 20041123, end: 20050201

REACTIONS (6)
  - ASTHENIA [None]
  - CORONARY ANGIOPLASTY [None]
  - RENAL FAILURE ACUTE [None]
  - IMPLANTABLE DEFIBRILLATOR INSERTION [None]
  - CORONARY ARTERIAL STENT INSERTION [None]
  - CARDIAC FAILURE CONGESTIVE [None]
